FAERS Safety Report 11060749 (Version 4)
Quarter: 2015Q2

REPORT INFORMATION
  Report Type: Spontaneous
  Country: BR (occurrence: BR)
  Receive Date: 20150423
  Receipt Date: 20150623
  Transmission Date: 20150821
  Serious: Yes (Life-Threatening, Hospitalization, Other)
  Sender: FDA-Public Use
  Company Number: BR-ASTRAZENECA-2015SE35883

PATIENT
  Age: 50 Year
  Sex: Female
  Weight: 95 kg

DRUGS (9)
  1. NIOXIL [Concomitant]
     Indication: ANGINA PECTORIS
  2. GLIBENCLAMIDE [Concomitant]
     Active Substance: GLYBURIDE
     Indication: DIABETES MELLITUS
     Dates: start: 2011
  3. SYMBICORT [Suspect]
     Active Substance: BUDESONIDE\FORMOTEROL FUMARATE DIHYDRATE
     Indication: ASTHMA
     Dosage: 320/9 UG, TWO TIMES A DAY
     Route: 055
     Dates: start: 201501, end: 201504
  4. HYDROCHLOROTHIAZIDE. [Suspect]
     Active Substance: HYDROCHLOROTHIAZIDE
     Indication: HYPERTENSION
     Dosage: NON AZ PRODUCT
     Route: 048
  5. METFORMIN [Suspect]
     Active Substance: METFORMIN HYDROCHLORIDE
     Indication: DIABETES MELLITUS
     Dosage: NON AZ PRODUCT
     Route: 048
     Dates: start: 2011
  6. DIAZEPAM. [Concomitant]
     Active Substance: DIAZEPAM
     Indication: DEPRESSION
  7. SYMBICORT [Suspect]
     Active Substance: BUDESONIDE\FORMOTEROL FUMARATE DIHYDRATE
     Indication: ASTHMA
     Dosage: ALENIA
     Route: 055
     Dates: end: 201501
  8. LOSARTAN [Concomitant]
     Active Substance: LOSARTAN
     Indication: HYPERTENSION
  9. SYMBICORT [Suspect]
     Active Substance: BUDESONIDE\FORMOTEROL FUMARATE DIHYDRATE
     Indication: ASTHMA
     Dosage: ALENIA
     Route: 055
     Dates: start: 2015

REACTIONS (3)
  - Diabetes mellitus [Recovering/Resolving]
  - Asthmatic crisis [Recovered/Resolved]
  - Cardio-respiratory arrest [Recovered/Resolved]

NARRATIVE: CASE EVENT DATE: 2011
